FAERS Safety Report 9781199 (Version 1)
Quarter: 2013Q4

REPORT INFORMATION
  Report Type: Spontaneous
  Country: DE (occurrence: None)
  Receive Date: 20131220
  Receipt Date: 20131220
  Transmission Date: 20140711
  Serious: Yes (Other)
  Sender: FDA-Public Use
  Company Number: 7258120

PATIENT
  Age: 48 Year
  Sex: Female

DRUGS (2)
  1. L-THYROXINE [Suspect]
     Indication: PRODUCT USED FOR UNKNOWN INDICATION
     Dosage: 125 MCG (125 MCG, 1 IN 1 D), ORAL
     Route: 048
  2. TAMOXIFEN [Suspect]
     Indication: BREAST CANCER
     Dosage: 20 MG (20 MG, 1 IN 1 D), ORAL, PAST THREE MONTHS - STOPPED
     Route: 048

REACTIONS (3)
  - Hypertriglyceridaemia [None]
  - Blood thyroid stimulating hormone decreased [None]
  - Hyperthyroidism [None]
